FAERS Safety Report 17482662 (Version 1)
Quarter: 2020Q1

REPORT INFORMATION
  Report Type: Spontaneous
  Country: CO (occurrence: CO)
  Receive Date: 20200302
  Receipt Date: 20200302
  Transmission Date: 20200409
  Serious: Yes (Hospitalization)
  Sender: FDA-Public Use
  Company Number: CO-PFIZER INC-2020090527

PATIENT
  Sex: Female

DRUGS (2)
  1. PALBOCICLIB [Suspect]
     Active Substance: PALBOCICLIB
     Dosage: 2 CYCLES OF TREATMENT
  2. LETROZOL [Suspect]
     Active Substance: LETROZOLE
     Dosage: 2 CYCLES OF TREATMENT

REACTIONS (2)
  - Subarachnoid haemorrhage [Unknown]
  - Cerebral venous sinus thrombosis [Unknown]
